FAERS Safety Report 10661434 (Version 1)
Quarter: 2014Q4

REPORT INFORMATION
  Report Type: Spontaneous
  Country: US (occurrence: None)
  Receive Date: 20141217
  Receipt Date: 20141217
  Transmission Date: 20150529
  Serious: Yes (Life-Threatening, Hospitalization)
  Sender: FDA-Public Use
  Company Number: None

PATIENT
  Age: 54 Year
  Sex: Female
  Weight: 60.8 kg

DRUGS (2)
  1. DABRAFENIB [Suspect]
     Active Substance: DABRAFENIB
     Indication: METASTATIC MALIGNANT MELANOMA
     Route: 048
  2. TRAMETINIB [Suspect]
     Active Substance: TRAMETINIB
     Indication: METASTATIC MALIGNANT MELANOMA
     Route: 048

REACTIONS (11)
  - Transaminases increased [None]
  - Cholecystitis [None]
  - Leukopenia [None]
  - Pyrexia [None]
  - Headache [None]
  - Hypotension [None]
  - Acute kidney injury [None]
  - Pancreatitis acute [None]
  - Disseminated intravascular coagulation [None]
  - Dyskinesia [None]
  - Septic shock [None]

NARRATIVE: CASE EVENT DATE: 20141105
